FAERS Safety Report 15264347 (Version 1)
Quarter: 2018Q3

REPORT INFORMATION
  Report Type: Spontaneous
  Country: US (occurrence: US)
  Receive Date: 20180722
  Receipt Date: 20180722
  Transmission Date: 20181010
  Serious: Yes (Other)
  Sender: FDA-Public Use
  Company Number: None

PATIENT
  Age: 50 Year
  Sex: Male
  Weight: 92.7 kg

DRUGS (16)
  1. POTASSIUM [Concomitant]
     Active Substance: POTASSIUM
  2. URIBEL [Suspect]
     Active Substance: HYOSCYAMINE SULFATE\METHENAMINE\METHYLENE BLUE\PHENYL SALICYLATE\SODIUM PHOSPHATE, MONOBASIC, MONOHYDRATE
     Indication: CYSTITIS
     Dosage: ?          QUANTITY:1 TABLET(S);?
     Route: 048
  3. PEPTO?BISMOL [Concomitant]
     Active Substance: BISMUTH SUBSALICYLATE
  4. LASIX [Concomitant]
     Active Substance: FUROSEMIDE
  5. PANTOPRAZOLE [Concomitant]
     Active Substance: PANTOPRAZOLE
  6. CYMBALTA [Concomitant]
     Active Substance: DULOXETINE HYDROCHLORIDE
  7. MIRALAX [Concomitant]
     Active Substance: POLYETHYLENE GLYCOL 3350
  8. ZOFRAN [Concomitant]
     Active Substance: ONDANSETRON HYDROCHLORIDE
  9. PROAIR HFA [Concomitant]
     Active Substance: ALBUTEROL SULFATE
  10. PRAMIPEXOLE. [Concomitant]
     Active Substance: PRAMIPEXOLE
  11. SENEXON [Concomitant]
     Active Substance: SENNOSIDES A AND B
  12. METOPROLOL ER [Concomitant]
     Active Substance: METOPROLOL SUCCINATE
  13. FERROUS GLUCONATE [Concomitant]
     Active Substance: FERROUS GLUCONATE
  14. PYRIDIUM [Concomitant]
     Active Substance: PHENAZOPYRIDINE
  15. RANITIDINE. [Concomitant]
     Active Substance: RANITIDINE
  16. LIPITOR [Concomitant]
     Active Substance: ATORVASTATIN CALCIUM

REACTIONS (7)
  - Vision blurred [None]
  - Salivary hypersecretion [None]
  - Vomiting [None]
  - Nausea [None]
  - Constipation [None]
  - Influenza [None]
  - Gastrointestinal pain [None]

NARRATIVE: CASE EVENT DATE: 20180708
